FAERS Safety Report 20928727 (Version 5)
Quarter: 2023Q1

REPORT INFORMATION
  Report Type: Spontaneous
  Country: US (occurrence: US)
  Receive Date: 20220607
  Receipt Date: 20230326
  Transmission Date: 20230418
  Serious: Yes (Hospitalization, Other)
  Sender: FDA-Public Use
  Company Number: US-UCBSA-2022010266

PATIENT
  Sex: Female
  Weight: 86.168 kg

DRUGS (2)
  1. CIMZIA [Suspect]
     Active Substance: CERTOLIZUMAB PEGOL
     Indication: Rheumatoid arthritis
     Dosage: 200 MILLIGRAM, EV 2 WEEKS(QOW)
     Route: 058
     Dates: start: 202108
  2. CIMZIA [Suspect]
     Active Substance: CERTOLIZUMAB PEGOL
     Dosage: 200 MILLIGRAM, EV 2 WEEKS(QOW)
     Route: 058
     Dates: start: 202108

REACTIONS (11)
  - Surgery [Unknown]
  - Nephrolithiasis [Unknown]
  - Gastric disorder [Unknown]
  - Joint stiffness [Unknown]
  - Lethargy [Unknown]
  - Fatigue [Unknown]
  - Skin infection [Unknown]
  - Gastric infection [Unknown]
  - Product dose omission issue [Unknown]
  - Illness [Unknown]
  - Intentional dose omission [Unknown]

NARRATIVE: CASE EVENT DATE: 20220101
